FAERS Safety Report 5979111-5 (Version None)
Quarter: 2008Q4

REPORT INFORMATION
  Report Type: 
  Country: None (occurrence: None)
  Receive Date: 20081204
  Receipt Date: 20080723
  Transmission Date: 20090506
  Serious: No
  Sender: FDA-Public Use
  Company Number: US-ABBOTT-08P-163-0465722-00

PATIENT
  Sex: Male
  Weight: 90.8 kg

DRUGS (3)
  1. TRICOR [Suspect]
     Indication: BLOOD TRIGLYCERIDES INCREASED
     Route: 048
     Dates: start: 20070101, end: 20080601
  2. EZETIMIBE [Concomitant]
     Indication: BLOOD CHOLESTEROL
     Route: 048
     Dates: start: 20070101, end: 20080601
  3. ASPIRIN AND DIPYRIDAMOLE [Concomitant]
     Indication: ANTICOAGULANT THERAPY
     Dosage: 25/200
     Route: 048
     Dates: start: 20050101

REACTIONS (4)
  - ARTHRALGIA [None]
  - MUSCLE ENZYME INCREASED [None]
  - MYALGIA [None]
  - PAIN IN EXTREMITY [None]
